FAERS Safety Report 19048469 (Version 1)
Quarter: 2021Q1

REPORT INFORMATION
  Report Type: Report from Study
  Country: US (occurrence: US)
  Receive Date: 20210323
  Receipt Date: 20210323
  Transmission Date: 20210420
  Serious: Yes (Hospitalization)
  Sender: FDA-Public Use
  Company Number: US-GLAXOSMITHKLINE-US2021AMR060486

PATIENT
  Sex: Female

DRUGS (5)
  1. CARVEDILOL. [Suspect]
     Active Substance: CARVEDILOL
     Indication: PRODUCT USED FOR UNKNOWN INDICATION
     Dosage: UNK
  2. LOSARTAN. [Suspect]
     Active Substance: LOSARTAN
     Indication: PRODUCT USED FOR UNKNOWN INDICATION
     Dosage: UNK
  3. SALBUTAMOL SULPHATE [Suspect]
     Active Substance: ALBUTEROL SULFATE
     Indication: WHEEZING
     Dosage: UNK UNK, PRN
     Dates: start: 20210219
  4. ENTRESTO [Suspect]
     Active Substance: SACUBITRIL\VALSARTAN
     Indication: CARDIAC FAILURE
     Dosage: 24.26 MG, BID
     Route: 048
     Dates: start: 20210106
  5. PREVACID [Suspect]
     Active Substance: LANSOPRAZOLE
     Indication: PRODUCT USED FOR UNKNOWN INDICATION
     Dosage: UNK

REACTIONS (9)
  - Cardiac assistance device user [Unknown]
  - Decreased appetite [Unknown]
  - Dehydration [Unknown]
  - Weight decreased [Unknown]
  - Ejection fraction normal [Unknown]
  - Wheezing [Unknown]
  - Catheterisation cardiac normal [Recovering/Resolving]
  - Ultrasound scan [Unknown]
  - Cardiac rehabilitation therapy [Unknown]
